FAERS Safety Report 24135883 (Version 1)
Quarter: 2024Q3

REPORT INFORMATION
  Report Type: Spontaneous
  Country: DE (occurrence: DE)
  Receive Date: 20240725
  Receipt Date: 20240725
  Transmission Date: 20241017
  Serious: Yes (Other)
  Sender: BOEHRINGER INGELHEIM
  Company Number: None

PATIENT
  Age: 75 Year
  Sex: Male
  Weight: 82 kg

DRUGS (3)
  1. EMPAGLIFLOZIN [Suspect]
     Active Substance: EMPAGLIFLOZIN
     Indication: Insulin-requiring type 2 diabetes mellitus
     Dosage: FORM STRENGTH: 10 MILLIGRAM
     Route: 048
     Dates: start: 20240706, end: 20240717
  2. EMPAGLIFLOZIN [Suspect]
     Active Substance: EMPAGLIFLOZIN
     Indication: Cardiac failure
  3. EMPAGLIFLOZIN [Suspect]
     Active Substance: EMPAGLIFLOZIN
     Indication: Acute coronary syndrome

REACTIONS (5)
  - Depressed level of consciousness [Recovering/Resolving]
  - Ketoacidosis [Recovering/Resolving]
  - Confusional state [Recovering/Resolving]
  - Blood lactic acid increased [Recovering/Resolving]
  - Hypovolaemia [Recovering/Resolving]

NARRATIVE: CASE EVENT DATE: 20240717
